FAERS Safety Report 4397332-2 (Version None)
Quarter: 2004Q3

REPORT INFORMATION
  Report Type: 
  Country: None (occurrence: None)
  Receive Date: 20040714
  Receipt Date: 20040701
  Transmission Date: 20050211
  Serious: Yes (Other)
  Sender: FDA-Public Use
  Company Number: GB-GLAXOSMITHKLINE-B0337748A

PATIENT
  Age: 40 Year
  Sex: Male

DRUGS (1)
  1. ZYBAN [Suspect]
     Dosage: 150MG UNKNOWN
     Route: 048
     Dates: end: 20040613

REACTIONS (3)
  - FEELING HOT [None]
  - PRURITUS [None]
  - URTICARIA [None]
